FAERS Safety Report 16219060 (Version 1)
Quarter: 2019Q2

REPORT INFORMATION
  Report Type: Spontaneous
  Country: US (occurrence: US)
  Receive Date: 20190419
  Receipt Date: 20190419
  Transmission Date: 20190711
  Serious: Yes (Hospitalization)
  Sender: FDA-Public Use
  Company Number: US-EMD SERONO-9086295

PATIENT

DRUGS (2)
  1. BAVENCIO [Suspect]
     Active Substance: AVELUMAB
     Indication: RENAL CELL CARCINOMA
  2. INLYTA [Suspect]
     Active Substance: AXITINIB
     Indication: RENAL CELL CARCINOMA

REACTIONS (4)
  - Rash [Unknown]
  - Colitis [Unknown]
  - Toxicity to various agents [Unknown]
  - Diarrhoea [Unknown]
